FAERS Safety Report 6218311-6 (Version None)
Quarter: 2009Q2

REPORT INFORMATION
  Report Type: 
  Country: None (occurrence: None)
  Receive Date: 20090604
  Receipt Date: 20090604
  Transmission Date: 20091009
  Serious: No
  Sender: FDA-Public Use
  Company Number: None

PATIENT
  Age: 30 Year
  Sex: Male
  Weight: 72.5755 kg

DRUGS (1)
  1. CEPHALEXIN [Suspect]
     Indication: PARONYCHIA
     Dosage: 500MG QID PO
     Route: 048
     Dates: start: 20090520, end: 20090521

REACTIONS (3)
  - ABDOMINAL PAIN UPPER [None]
  - NAUSEA [None]
  - VOMITING [None]
